FAERS Safety Report 17582938 (Version 1)
Quarter: 2020Q1

REPORT INFORMATION
  Report Type: Other
  Country: US (occurrence: US)
  Receive Date: 20200325
  Receipt Date: 20200325
  Transmission Date: 20200409
  Serious: No
  Sender: FDA-Public Use
  Company Number: US-VERASTEM-2020-00059

PATIENT

DRUGS (3)
  1. ISTODAX [Suspect]
     Active Substance: ROMIDEPSIN
     Indication: PRODUCT USED FOR UNKNOWN INDICATION
     Dosage: UNK, UNK
     Route: 041
     Dates: start: 20200319
  2. COPIKTRA [Suspect]
     Active Substance: DUVELISIB
     Indication: ANGIOIMMUNOBLASTIC T-CELL LYMPHOMA
     Dosage: 25 MG, QD
     Route: 048
     Dates: start: 20200316
  3. COPIKTRA [Suspect]
     Active Substance: DUVELISIB
     Indication: NON-HODGKIN^S LYMPHOMA

REACTIONS (5)
  - Fatigue [Recovering/Resolving]
  - Sinus headache [Unknown]
  - Platelet count decreased [Unknown]
  - Red blood cell count decreased [Unknown]
  - Product use in unapproved indication [Not Recovered/Not Resolved]

NARRATIVE: CASE EVENT DATE: 2020
